FAERS Safety Report 9713808 (Version 1)
Quarter: 2013Q4

REPORT INFORMATION
  Report Type: Spontaneous
  Country: US (occurrence: None)
  Receive Date: 20131122
  Receipt Date: 20131122
  Transmission Date: 20140711
  Serious: No
  Sender: FDA-Public Use
  Company Number: PI-09858

PATIENT
  Age: 8 Year
  Sex: Male

DRUGS (2)
  1. CHLORAPREP [Suspect]
     Indication: THERAPEUTIC SKIN CARE TOPICAL
     Dosage: 10.5ML, TOPICAL ONCE
     Dates: start: 20130927
  2. CHLORAPREP [Suspect]
     Indication: PREOPERATIVE CARE
     Dosage: 10.5ML, TOPICAL ONCE
     Dates: start: 20130927

REACTIONS (2)
  - Culture positive [None]
  - Bacterial test positive [None]
